FAERS Safety Report 7692524-9 (Version None)
Quarter: 2011Q3

REPORT INFORMATION
  Report Type: 
  Country: None (occurrence: None)
  Receive Date: 20110819
  Receipt Date: 20110811
  Transmission Date: 20111222
  Serious: Yes (Hospitalization)
  Sender: FDA-Public Use
  Company Number: FR-MERCK-1108USA00632

PATIENT
  Age: 23 Year
  Sex: Male

DRUGS (5)
  1. ISRADIPINE [Suspect]
     Route: 048
     Dates: end: 20110601
  2. NEORAL [Suspect]
     Route: 048
     Dates: start: 20100813
  3. CELLCEPT [Suspect]
     Route: 048
     Dates: start: 20100813, end: 20110531
  4. COZAAR [Suspect]
     Indication: HYPERTENSION
     Route: 048
     Dates: start: 20100813, end: 20110601
  5. TRAMADOL HCL [Suspect]
     Route: 065

REACTIONS (1)
  - AGRANULOCYTOSIS [None]
